FAERS Safety Report 7380172-X (Version None)
Quarter: 2011Q1

REPORT INFORMATION
  Report Type: 
  Country: None (occurrence: None)
  Receive Date: 20110329
  Receipt Date: 20101005
  Transmission Date: 20110831
  Serious: No
  Sender: FDA-Public Use
  Company Number: US-MYLANLABS-2010S1018509

PATIENT
  Age: 59 Year
  Sex: Female

DRUGS (5)
  1. ESTRADIOL [Suspect]
     Indication: HORMONE REPLACEMENT THERAPY
     Dosage: CHANGED QW
     Route: 062
     Dates: start: 20100901
  2. FISH OIL [Concomitant]
  3. CYMBALTA [Concomitant]
  4. HYDROCHLOROTHIAZIDE [Concomitant]
  5. MULTIVITAMIN [Concomitant]

REACTIONS (1)
  - APPLICATION SITE IRRITATION [None]
